FAERS Safety Report 8190790-7 (Version None)
Quarter: 2012Q1

REPORT INFORMATION
  Report Type: 
  Country: None (occurrence: None)
  Receive Date: 20120307
  Receipt Date: 20120228
  Transmission Date: 20120608
  Serious: Yes (Hospitalization)
  Sender: FDA-Public Use
  Company Number: IT-BMSGILMSD-2012-0051682

PATIENT
  Sex: Female

DRUGS (1)
  1. ATRIPLA [Suspect]
     Indication: HIV INFECTION

REACTIONS (1)
  - HEMIPARESIS [None]
